FAERS Safety Report 24460370 (Version 1)
Quarter: 2024Q4

REPORT INFORMATION
  Report Type: Report from Study
  Country: US (occurrence: US)
  Receive Date: 20241018
  Receipt Date: 20241018
  Transmission Date: 20250115
  Serious: No
  Sender: ROCHE
  Company Number: US-ROCHE-3546534

PATIENT
  Age: 49 Year
  Sex: Female
  Weight: 76.0 kg

DRUGS (1)
  1. RITUXAN [Suspect]
     Active Substance: RITUXIMAB
     Indication: Antiphospholipid syndrome
     Dosage: 375 MG/M2 IVBP IN 500 ML NS
     Route: 042
     Dates: start: 20240403

REACTIONS (2)
  - Off label use [Unknown]
  - No adverse event [Unknown]
